FAERS Safety Report 8765297 (Version 1)
Quarter: 2012Q4

REPORT INFORMATION
  Report Type: 
  Country: US (occurrence: US)
  Receive Date: 20120831
  Receipt Date: 20120831
  Transmission Date: 20130627
  Serious: No
  Sender: FDA-Public Use
  Company Number: US-TEVA-355611USA

PATIENT
  Sex: Female
  Weight: 59.02 kg

DRUGS (3)
  1. NUVIGIL [Suspect]
     Indication: FATIGUE
     Dosage: 250 Milligram Daily;
     Route: 048
     Dates: start: 201107
  2. COPAXONE [Concomitant]
     Indication: MULTIPLE SCLEROSIS
     Dosage: 20 Milligram Daily;
     Route: 058
  3. SYNTHROID [Concomitant]
     Indication: THYROID DISORDER
     Dosage: 88 Microgram Daily;
     Route: 048

REACTIONS (2)
  - Off label use [Unknown]
  - Migraine [Recovered/Resolved]
